FAERS Safety Report 14601350 (Version 3)
Quarter: 2018Q2

REPORT INFORMATION
  Report Type: Spontaneous
  Country: DK (occurrence: DK)
  Receive Date: 20180305
  Receipt Date: 20180530
  Transmission Date: 20180711
  Serious: Yes (Other)
  Sender: FDA-Public Use
  Company Number: DK-ABBVIE-18K-044-2274320-00

PATIENT
  Age: 63 Year
  Sex: Female

DRUGS (8)
  1. HUMIRA [Suspect]
     Active Substance: ADALIMUMAB
     Indication: CROHN^S DISEASE
     Dosage: CUMULATIVE DOSE TO FIRST REACTION: 3042.738 MILLIGRAM
     Route: 058
     Dates: start: 201411, end: 20171221
  2. PYRIDOXINE HYDROCHLORIDE. [Concomitant]
     Active Substance: PYRIDOXINE HYDROCHLORIDE
     Indication: ZINC DEFICIENCY
     Dosage: STYRKE: 22 MG
     Route: 048
     Dates: start: 20140708
  3. UNIKALK BASIC [Concomitant]
     Indication: CROHN^S DISEASE
     Dosage: DOSAGE FORM: UNSPECIFIED
     Route: 048
     Dates: start: 20110906
  4. MERCAPTOPURINE. [Concomitant]
     Active Substance: MERCAPTOPURINE
     Indication: PRODUCT USED FOR UNKNOWN INDICATION
     Dosage: DOSAGE FORM: UNSPECIFIED; START - OG STOPDATO, DOSIS, STYRKE OG INDIKATION KENDES IKKE.
     Route: 065
  5. ZINC OXIDE. [Concomitant]
     Active Substance: ZINC OXIDE
     Indication: ZINC DEFICIENCY
     Dosage: STYRKE: 22 MG
     Route: 048
     Dates: start: 20140708
  6. REMICADE [Suspect]
     Active Substance: INFLIXIMAB
     Indication: CROHN^S DISEASE
     Dosage: DOSAGE FORM: LYOPHILIZED POWDER; DOSIS OG STYRKE ER UKENDT.
     Route: 042
     Dates: start: 201408, end: 201411
  7. VAGIFEM [Concomitant]
     Active Substance: ESTRADIOL
     Indication: PRODUCT USED FOR UNKNOWN INDICATION
     Dosage: DOSAGE FORM: UNSPECIFIED; STYRKE: 10 MICROGRAM
     Route: 067
     Dates: start: 20131210
  8. VIBEDEN [Concomitant]
     Indication: VITAMIN B12 DEFICIENCY
     Dosage: STYRKE: 1 MG/ML; DOSAGE FORM: UNSPECIFIED
     Route: 030
     Dates: start: 20140708

REACTIONS (11)
  - Ear pain [Unknown]
  - Metastatic squamous cell carcinoma [Unknown]
  - Lymphadenopathy [Unknown]
  - Facial asymmetry [Unknown]
  - Ear pain [Unknown]
  - Pharyngeal oedema [Unknown]
  - Oropharyngeal pain [Unknown]
  - Tonsil cancer [Unknown]
  - Metastases to lymph nodes [Unknown]
  - Mouth ulceration [Unknown]
  - Throat tightness [Unknown]

NARRATIVE: CASE EVENT DATE: 20171001
